FAERS Safety Report 5580525-6 (Version None)
Quarter: 2008Q1

REPORT INFORMATION
  Report Type: 
  Country: None (occurrence: None)
  Receive Date: 20080103
  Receipt Date: 20071220
  Transmission Date: 20080703
  Serious: Yes (Hospitalization)
  Sender: FDA-Public Use
  Company Number: US-ELI_LILLY_AND_COMPANY-US200712004276

PATIENT
  Sex: Female

DRUGS (2)
  1. HUMALOG [Suspect]
     Dates: start: 20060101
  2. LANTUS [Concomitant]
     Dosage: UNK, EACH EVENING

REACTIONS (3)
  - ASTHENIA [None]
  - FATIGUE [None]
  - HYPERTENSION [None]
